FAERS Safety Report 22073031 (Version 2)
Quarter: 2023Q1

REPORT INFORMATION
  Report Type: Spontaneous
  Country: KR (occurrence: KR)
  Receive Date: 20230308
  Receipt Date: 20230317
  Transmission Date: 20230417
  Serious: Yes (Other)
  Sender: FDA-Public Use
  Company Number: KR-ASTELLAS-2022US017058

PATIENT
  Age: 83 Year
  Sex: Male

DRUGS (4)
  1. XTANDI [Suspect]
     Active Substance: ENZALUTAMIDE
     Indication: Prostate cancer
     Dosage: 160 MG, ONCE DAILY (4 CAPSULES ONCE DAILY AT 9AM ORAL WITH WATER)
     Route: 048
     Dates: start: 20220420
  2. XTANDI [Suspect]
     Active Substance: ENZALUTAMIDE
     Dosage: 160 MG, ONCE DAILY 4 CAPSULES ONCE DAILY EVERY MORNING AT THE SAME TIME
     Route: 048
     Dates: start: 20230220
  3. ATIVAN [Concomitant]
     Active Substance: LORAZEPAM
     Indication: Sleep disorder
     Dosage: 1 OR 2 TABLETS, ONCE DAILY
     Route: 065
  4. LIPITOR [Concomitant]
     Active Substance: ATORVASTATIN CALCIUM
     Indication: Hyperlipidaemia
     Route: 065

REACTIONS (11)
  - Metastasis [Unknown]
  - Prostatic specific antigen increased [Unknown]
  - Blood pressure increased [Recovered/Resolved]
  - Blood glucose increased [Recovered/Resolved]
  - Feeling cold [Recovered/Resolved]
  - Lymphadenopathy [Unknown]
  - Chills [Unknown]
  - Hyperlipidaemia [Not Recovered/Not Resolved]
  - Glossodynia [Unknown]
  - Dyschezia [Unknown]
  - Drug ineffective [Unknown]

NARRATIVE: CASE EVENT DATE: 20220501
